FAERS Safety Report 8053657-0 (Version None)
Quarter: 2012Q1

REPORT INFORMATION
  Report Type: 
  Country: None (occurrence: None)
  Receive Date: 20120118
  Receipt Date: 20120112
  Transmission Date: 20120608
  Serious: Yes (Other)
  Sender: FDA-Public Use
  Company Number: US-PFIZER INC-2012009947

PATIENT
  Sex: Female
  Weight: 77.098 kg

DRUGS (9)
  1. ATENOLOL [Concomitant]
     Dosage: 50 MG, UNK
  2. LASIX [Concomitant]
     Dosage: 40 MG, 2X/DAY
  3. LYRICA [Suspect]
     Indication: MUSCLE SPASMS
     Dosage: 75 MG, 2X/DAY
     Route: 048
     Dates: start: 20120110, end: 20120111
  4. CARDURA [Concomitant]
     Dosage: 4 MG, UNK
  5. PRILOSEC [Concomitant]
     Dosage: UNK
  6. CARDIZEM [Concomitant]
     Dosage: UNK, 1X/DAY
  7. CODEINE [Concomitant]
     Dosage: 0.3 MG, UNK
  8. KLOR-CON [Concomitant]
     Dosage: UNK
  9. PRINIVIL [Concomitant]
     Dosage: UNK

REACTIONS (2)
  - LOSS OF CONSCIOUSNESS [None]
  - SOMNOLENCE [None]
